FAERS Safety Report 5194036-3 (Version None)
Quarter: 2006Q4

REPORT INFORMATION
  Report Type: 
  Country: None (occurrence: None)
  Receive Date: 20061222
  Receipt Date: 20061211
  Transmission Date: 20070319
  Serious: Yes (Hospitalization)
  Sender: FDA-Public Use
  Company Number: 232695

PATIENT
  Age: 49 Year
  Sex: Female
  Weight: 80.6 kg

DRUGS (3)
  1. HERCEPTIN [Suspect]
     Indication: BREAST CANCER
     Dosage: 8 MG/KG, SINGLE, INTRAVENOUS
     Route: 042
     Dates: start: 20061103, end: 20061103
  2. VITAMIN E [Concomitant]
  3. MOBIC [Concomitant]

REACTIONS (11)
  - CSF NEUTROPHIL COUNT INCREASED [None]
  - FACIAL PALSY [None]
  - HAEMATOCRIT DECREASED [None]
  - HYPOAESTHESIA FACIAL [None]
  - LACUNAR INFARCTION [None]
  - LIP SWELLING [None]
  - LYMPHOCYTE PERCENTAGE DECREASED [None]
  - NEUTROPHIL PERCENTAGE INCREASED [None]
  - PARAESTHESIA [None]
  - PERIPHERAL SENSORY NEUROPATHY [None]
  - RED BLOOD CELLS CSF POSITIVE [None]
